FAERS Safety Report 4394300-1 (Version None)
Quarter: 2004Q3

REPORT INFORMATION
  Report Type: 
  Country: None (occurrence: None)
  Receive Date: 20040707
  Receipt Date: 20040621
  Transmission Date: 20050211
  Serious: Yes (Hospitalization)
  Sender: FDA-Public Use
  Company Number: 2004-BP-02176BP

PATIENT
  Age: 78 Year
  Sex: Female

DRUGS (5)
  1. ATROVENT [Suspect]
     Indication: CHRONIC OBSTRUCTIVE AIRWAYS DISEASE
     Dosage: 288 MCG (18 MCG, 4 PUFFS QID), IH
     Route: 055
     Dates: start: 20020101
  2. XANAX [Concomitant]
  3. PRINIVIL [Concomitant]
  4. CLONIDINE [Concomitant]
  5. SEREVENT [Concomitant]

REACTIONS (9)
  - ASTHENIA [None]
  - CONCUSSION [None]
  - DIVERTICULITIS [None]
  - DRUG TOXICITY [None]
  - FALL [None]
  - FATIGUE [None]
  - HAEMORRHAGE [None]
  - HEAD INJURY [None]
  - VOMITING [None]
